FAERS Safety Report 9168249 (Version 1)
Quarter: 2013Q1

REPORT INFORMATION
  Report Type: Spontaneous
  Country: BR (occurrence: BR)
  Receive Date: 20130318
  Receipt Date: 20130318
  Transmission Date: 20140127
  Serious: Yes (Death)
  Sender: FDA-Public Use
  Company Number: PHHY2013BR025683

PATIENT
  Sex: Female

DRUGS (4)
  1. STALEVO [Suspect]
     Dosage: UNK UNK, QD
  2. HEIMER [Concomitant]
  3. RIVOTRIL [Concomitant]
  4. DONAREN [Concomitant]

REACTIONS (1)
  - Death [Fatal]
